FAERS Safety Report 9642608 (Version 2)
Quarter: 2013Q4

REPORT INFORMATION
  Report Type: Spontaneous
  Country: US (occurrence: US)
  Receive Date: 20131024
  Receipt Date: 20131203
  Transmission Date: 20140711
  Serious: No
  Sender: FDA-Public Use
  Company Number: US-PFIZER INC-2013302132

PATIENT
  Age: 41 Year
  Sex: Female

DRUGS (4)
  1. VFEND [Suspect]
     Indication: FUNGAL INFECTION
     Dosage: UNK
     Route: 048
     Dates: start: 201308, end: 2013
  2. ZYRTEC [Concomitant]
     Indication: HYPERSENSITIVITY
     Dosage: UNK
     Dates: start: 2002
  3. CYMBALTA [Concomitant]
     Indication: ANXIETY
     Dosage: 60 MG, DAILY
     Dates: start: 201211
  4. MIRENA [Concomitant]
     Indication: CONTRACEPTION
     Dosage: UNK
     Dates: start: 201002

REACTIONS (1)
  - Dermatitis exfoliative [Recovered/Resolved]
